FAERS Safety Report 9473166 (Version 1)
Quarter: 2013Q3

REPORT INFORMATION
  Report Type: Spontaneous
  Country: US (occurrence: US)
  Receive Date: 20130823
  Receipt Date: 20130823
  Transmission Date: 20140515
  Serious: Yes (Hospitalization)
  Sender: FDA-Public Use
  Company Number: US-BRISTOL-MYERS SQUIBB COMPANY-18710814

PATIENT
  Age: 34 Year
  Sex: Female
  Weight: 70.29 kg

DRUGS (4)
  1. SPRYCEL (CML) TABS 100 MG [Suspect]
  2. LOESTRIN [Concomitant]
  3. PEPCID [Concomitant]
  4. ALLOPURINOL [Concomitant]

REACTIONS (3)
  - Adverse event [Unknown]
  - Red blood cell count decreased [Unknown]
  - Nausea [Unknown]
